FAERS Safety Report 13635453 (Version 1)
Quarter: 2017Q2

REPORT INFORMATION
  Report Type: Spontaneous
  Country: US (occurrence: US)
  Receive Date: 20170608
  Receipt Date: 20170608
  Transmission Date: 20170830
  Serious: No
  Sender: FDA-Public Use
  Company Number: None

PATIENT
  Age: 51 Year
  Sex: Female
  Weight: 99 kg

DRUGS (16)
  1. CIPROFLOXACIN. [Suspect]
     Active Substance: CIPROFLOXACIN
     Indication: URINARY TRACT INFECTION
     Dosage: ?          QUANTITY:14 TABLET(S);?EVERY 12 HOURS ORAL
     Route: 048
     Dates: start: 20170502, end: 20170503
  2. HYDROCORTISONE. [Concomitant]
     Active Substance: HYDROCORTISONE
  3. MORPHINE ER [Concomitant]
     Active Substance: MORPHINE
  4. TIZANIDINE. [Concomitant]
     Active Substance: TIZANIDINE
  5. NEXIUM [Concomitant]
     Active Substance: ESOMEPRAZOLE MAGNESIUM
  6. SYNGARDIA [Concomitant]
  7. FLOWMAX [Concomitant]
  8. FIBER [Concomitant]
     Active Substance: PSYLLIUM HUSK
  9. ROXYCODONE [Concomitant]
     Active Substance: OXYCODONE HYDROCHLORIDE
  10. MVI [Concomitant]
     Active Substance: VITAMINS
  11. VITAMIN C [Concomitant]
     Active Substance: ASCORBIC ACID
  12. CALCIUM [Concomitant]
     Active Substance: CALCIUM
  13. BIDUREON [Concomitant]
  14. GRALISE [Concomitant]
     Active Substance: GABAPENTIN
  15. LIPITOR [Concomitant]
     Active Substance: ATORVASTATIN CALCIUM
  16. CPAP [Concomitant]
     Active Substance: DEVICE

REACTIONS (7)
  - Gait disturbance [None]
  - Therapy cessation [None]
  - Hallucination, visual [None]
  - Confusional state [None]
  - Lethargy [None]
  - Coordination abnormal [None]
  - Somnolence [None]

NARRATIVE: CASE EVENT DATE: 20170503
